FAERS Safety Report 23356008 (Version 1)
Quarter: 2024Q1

REPORT INFORMATION
  Report Type: Spontaneous
  Country: US (occurrence: None)
  Receive Date: 20240102
  Receipt Date: 20240102
  Transmission Date: 20240409
  Serious: No
  Sender: FDA-Public Use
  Company Number: 2023A290278

PATIENT
  Sex: Female

DRUGS (1)
  1. FARXIGA [Suspect]
     Active Substance: DAPAGLIFLOZIN PROPANEDIOL
     Dosage: 1ST DOSE5.0MG UNKNOWN
     Route: 048

REACTIONS (3)
  - Pollakiuria [Unknown]
  - Speech disorder [Unknown]
  - Vitamin D decreased [Unknown]
